FAERS Safety Report 7753247-0 (Version None)
Quarter: 2011Q3

REPORT INFORMATION
  Report Type: 
  Country: None (occurrence: None)
  Receive Date: 20110915
  Receipt Date: 20110602
  Transmission Date: 20111222
  Serious: No
  Sender: FDA-Public Use
  Company Number: US-GLAXOSMITHKLINE-A0930016A

PATIENT
  Age: 55 Year
  Sex: Female

DRUGS (6)
  1. ASPIRIN [Concomitant]
  2. PLAVIX [Concomitant]
  3. NICORETTE [Suspect]
     Indication: EX-TOBACCO USER
     Dates: start: 20110602
  4. SIMVASTATIN [Concomitant]
  5. COREG [Concomitant]
  6. LISINOPRIL [Concomitant]

REACTIONS (4)
  - PALPITATIONS [None]
  - NAUSEA [None]
  - FEELING ABNORMAL [None]
  - ACCIDENTAL EXPOSURE [None]
